FAERS Safety Report 13384691 (Version 1)
Quarter: 2017Q1

REPORT INFORMATION
  Report Type: Spontaneous
  Country: US (occurrence: US)
  Receive Date: 20170329
  Receipt Date: 20170329
  Transmission Date: 20170429
  Serious: Yes (Hospitalization)
  Sender: FDA-Public Use
  Company Number: None

PATIENT
  Age: 71 Year
  Sex: Female
  Weight: 42.75 kg

DRUGS (20)
  1. SITAGLIPTIN [Concomitant]
     Active Substance: SITAGLIPTIN
  2. OMEPRAZOLE. [Concomitant]
     Active Substance: OMEPRAZOLE
  3. WARFARIN [Suspect]
     Active Substance: WARFARIN
     Indication: ATRIAL FIBRILLATION
     Route: 048
     Dates: start: 20130228, end: 20170329
  4. ALBUTEROL INHALER [Concomitant]
     Active Substance: ALBUTEROL
  5. FERROUS SULFATE. [Concomitant]
     Active Substance: FERROUS SULFATE
  6. FLUTICASONE NASAL SPRAY [Concomitant]
     Active Substance: FLUTICASONE
  7. DILTIAZEM EXTENDED RELEASE [Concomitant]
     Active Substance: DILTIAZEM
  8. HYDROCHLOROTHIAZIDE AND LISINOPRIL [Concomitant]
     Active Substance: HYDROCHLOROTHIAZIDE\LISINOPRIL
  9. MULTIVITAMIN [Concomitant]
     Active Substance: VITAMINS
  10. HYDROCODONE/ACETAMINOPHEN [Concomitant]
     Active Substance: ACETAMINOPHEN\HYDROCODONE
  11. METOPROLOL TARTRATE. [Concomitant]
     Active Substance: METOPROLOL TARTRATE
  12. GABAPENTIN. [Concomitant]
     Active Substance: GABAPENTIN
  13. PSYLLIUM [Concomitant]
     Active Substance: PLANTAGO SEED
  14. PREDNISONE. [Concomitant]
     Active Substance: PREDNISONE
  15. TRAZODONE [Concomitant]
     Active Substance: TRAZODONE HYDROCHLORIDE
  16. ATORVASTATIN [Concomitant]
     Active Substance: ATORVASTATIN
  17. ASPIRIN. [Concomitant]
     Active Substance: ASPIRIN
  18. CALCIUM 600MG +D [Concomitant]
  19. ISOSORBIDE MONONITRATE. [Concomitant]
     Active Substance: ISOSORBIDE MONONITRATE
  20. BECLOMETHASONE INHALER [Concomitant]

REACTIONS (4)
  - Melaena [None]
  - Haemoglobin decreased [None]
  - Haematocrit decreased [None]
  - International normalised ratio increased [None]

NARRATIVE: CASE EVENT DATE: 20160708
